FAERS Safety Report 19139607 (Version 1)
Quarter: 2021Q2

REPORT INFORMATION
  Report Type: Spontaneous
  Country: US (occurrence: US)
  Receive Date: 20210415
  Receipt Date: 20210415
  Transmission Date: 20210717
  Serious: Yes (Life-Threatening, Other)
  Sender: FDA-Public Use
  Company Number: None

PATIENT
  Age: 29 Year
  Sex: Female
  Weight: 70.31 kg

DRUGS (2)
  1. COPPER IUD [Suspect]
     Active Substance: COPPER
     Dates: start: 20201026
  2. METHYLPREDNISOLONE. [Concomitant]
     Active Substance: METHYLPREDNISOLONE

REACTIONS (9)
  - Throat irritation [None]
  - Muscle spasms [None]
  - Drug hypersensitivity [None]
  - Urticaria [None]
  - Heavy menstrual bleeding [None]
  - Depression [None]
  - Condition aggravated [None]
  - Premenstrual syndrome [None]
  - Hormone level abnormal [None]

NARRATIVE: CASE EVENT DATE: 20210311
